FAERS Safety Report 4784371-2 (Version None)
Quarter: 2005Q3

REPORT INFORMATION
  Report Type: 
  Country: None (occurrence: None)
  Receive Date: 20050928
  Receipt Date: 20050919
  Transmission Date: 20060218
  Serious: Yes (Hospitalization, Other)
  Sender: FDA-Public Use
  Company Number: 2005130634

PATIENT
  Age: 38 Year
  Sex: Female
  Weight: 64.4108 kg

DRUGS (4)
  1. DEPO-PROVERA [Suspect]
     Indication: DYSMENORRHOEA
     Dosage: SEE IMAGE, INTRAMUSCULAR
     Route: 030
     Dates: start: 19960101, end: 19960101
  2. DEPO-PROVERA [Suspect]
     Indication: DYSMENORRHOEA
     Dosage: SEE IMAGE, INTRAMUSCULAR
     Route: 030
     Dates: start: 20041201, end: 20041201
  3. DEPO-PROVERA [Suspect]
     Indication: DYSMENORRHOEA
     Dosage: SEE IMAGE, INTRAMUSCULAR
     Route: 030
     Dates: start: 20050701, end: 20050701
  4. PRILOSEC [Concomitant]

REACTIONS (6)
  - ARTERIOSPASM CORONARY [None]
  - HYPERTENSION [None]
  - METRORRHAGIA [None]
  - MYOCARDIAL INFARCTION [None]
  - VAGINAL HAEMORRHAGE [None]
  - VISION BLURRED [None]
